FAERS Safety Report 9482066 (Version 1)
Quarter: 2013Q3

REPORT INFORMATION
  Report Type: Spontaneous
  Country: US (occurrence: US)
  Receive Date: 20130828
  Receipt Date: 20130828
  Transmission Date: 20140515
  Serious: Yes (Other)
  Sender: FDA-Public Use
  Company Number: US-JNJFOC-20130811990

PATIENT
  Age: 76 Year
  Sex: Male
  Weight: 106.14 kg

DRUGS (4)
  1. XARELTO [Suspect]
     Indication: DEEP VEIN THROMBOSIS
     Route: 048
     Dates: start: 2013
  2. BACTRIM DS [Interacting]
     Indication: SINUSITIS
     Route: 048
     Dates: start: 20130819
  3. ZOLOFT [Interacting]
     Indication: DEPRESSION
     Dosage: 50 MG ONE TIME A DAY HALF PILL
     Route: 048
     Dates: start: 20130819
  4. ZOLOFT [Interacting]
     Indication: ANXIETY
     Dosage: 50 MG ONE TIME A DAY HALF PILL
     Route: 048
     Dates: start: 20130819

REACTIONS (3)
  - Deep vein thrombosis [Not Recovered/Not Resolved]
  - Drug interaction [Unknown]
  - Drug dose omission [Unknown]
